FAERS Safety Report 8349564-6 (Version None)
Quarter: 2012Q2

REPORT INFORMATION
  Report Type: 
  Country: None (occurrence: None)
  Receive Date: 20120510
  Receipt Date: 20120501
  Transmission Date: 20120825
  Serious: Yes (Hospitalization)
  Sender: FDA-Public Use
  Company Number: US-BAYER-2011-107526

PATIENT
  Age: 22 Year
  Sex: Female
  Weight: 50 kg

DRUGS (11)
  1. INDERAL [Concomitant]
     Dosage: 10 MG, UNK
  2. LEVAQUIN [Concomitant]
     Dosage: 750 MG, UNK
  3. YAZ [Suspect]
     Indication: MENSTRUAL CYCLE MANAGEMENT
  4. FIBRE, DIETARY [Concomitant]
     Dosage: UNK UNK, QD
  5. YAZ [Suspect]
     Indication: CONTRACEPTION
     Dosage: UNK
     Route: 048
     Dates: start: 20070301, end: 20100101
  6. MAXALT [Concomitant]
     Indication: MIGRAINE
     Dosage: 5 MG, UNK
     Dates: start: 20091101, end: 20091201
  7. VITAMIN E [Concomitant]
  8. RELPAX [Concomitant]
     Dosage: 40 MG, QD
  9. TOPROL-XL [Concomitant]
     Indication: TACHYCARDIA
     Dosage: 25 MG, QD
     Dates: start: 20090101, end: 20100101
  10. DIGOXIN [Concomitant]
     Indication: TACHYCARDIA
     Dosage: 0.25 MG/ML, UNK
     Dates: start: 20090101, end: 20100101
  11. NASONEX [Concomitant]
     Dosage: 50 MCG

REACTIONS (9)
  - MOTOR DYSFUNCTION [None]
  - TACHYCARDIA [None]
  - INJURY [None]
  - PAIN [None]
  - HYPOAESTHESIA [None]
  - DYSARTHRIA [None]
  - EMOTIONAL DISTRESS [None]
  - GAIT DEVIATION [None]
  - CEREBROVASCULAR ACCIDENT [None]
